FAERS Safety Report 17106174 (Version 1)
Quarter: 2019Q4

REPORT INFORMATION
  Report Type: Spontaneous
  Country: US (occurrence: US)
  Receive Date: 20191203
  Receipt Date: 20191203
  Transmission Date: 20200122
  Serious: No
  Sender: FDA-Public Use
  Company Number: US-JNJFOC-20191135250

PATIENT
  Age: 64 Year
  Sex: Male
  Weight: 81.27 kg

DRUGS (1)
  1. STELARA [Suspect]
     Active Substance: USTEKINUMAB
     Indication: PSORIASIS
     Route: 058
     Dates: start: 2017

REACTIONS (5)
  - Psoriasis [Not Recovered/Not Resolved]
  - Hypersensitivity [Unknown]
  - Infection [Not Recovered/Not Resolved]
  - Insomnia [Not Recovered/Not Resolved]
  - Acarodermatitis [Not Recovered/Not Resolved]

NARRATIVE: CASE EVENT DATE: 201910
